FAERS Safety Report 5684764-5 (Version None)
Quarter: 2008Q1

REPORT INFORMATION
  Report Type: 
  Country: None (occurrence: None)
  Receive Date: 20080328
  Receipt Date: 20070905
  Transmission Date: 20080703
  Serious: No
  Sender: FDA-Public Use
  Company Number: US-BRISTOL-MYERS SQUIBB COMPANY-13898176

PATIENT
  Age: 87 Year
  Sex: Male
  Weight: 109 kg

DRUGS (4)
  1. ERBITUX [Suspect]
     Indication: HEPATIC NEOPLASM MALIGNANT
     Dates: start: 20070801
  2. IBUPROFEN [Concomitant]
  3. PAROXETINE HCL [Concomitant]
  4. BENADRYL [Concomitant]

REACTIONS (5)
  - ERYTHEMA [None]
  - PAIN IN EXTREMITY [None]
  - RASH [None]
  - RASH GENERALISED [None]
  - URTICARIA [None]
